FAERS Safety Report 13229812 (Version 1)
Quarter: 2017Q1

REPORT INFORMATION
  Report Type: Other
  Country: IT (occurrence: IT)
  Receive Date: 20170214
  Receipt Date: 20170214
  Transmission Date: 20170428
  Serious: Yes (Other)
  Sender: FDA-Public Use
  Company Number: IT-GRANULES INDIA LIMITED-1063052

PATIENT
  Sex: Female

DRUGS (3)
  1. GLICLAZIDE [Suspect]
     Active Substance: GLICLAZIDE
     Route: 064
  2. BASAL/BOLUS INSULIN [Suspect]
     Active Substance: INSULIN NOS
     Route: 064
  3. METFORMIN HYDROCHLORIDE. [Suspect]
     Active Substance: METFORMIN HYDROCHLORIDE
     Indication: PRODUCT USED FOR UNKNOWN INDICATION
     Route: 064

REACTIONS (5)
  - Low birth weight baby [None]
  - Maternal drugs affecting foetus [None]
  - Hypoglycaemia neonatal [Unknown]
  - Caesarean section [None]
  - Foetal exposure during pregnancy [Unknown]
